FAERS Safety Report 24114138 (Version 3)
Quarter: 2024Q3

REPORT INFORMATION
  Report Type: Spontaneous
  Country: JP (occurrence: JP)
  Receive Date: 20240720
  Receipt Date: 20240911
  Transmission Date: 20241017
  Serious: Yes (Hospitalization, Other)
  Sender: ACCORD
  Company Number: JP-MLMSERVICE-20240704-PI124141-00101-1

PATIENT
  Age: 18 Year
  Sex: Male

DRUGS (15)
  1. CISPLATIN [Interacting]
     Active Substance: CISPLATIN
     Indication: Osteosarcoma
     Dosage: FIRST DOSE
  2. IFOSFAMIDE [Suspect]
     Active Substance: IFOSFAMIDE
     Indication: Osteosarcoma
     Dosage: 3 TO 3.4 G/DAY EACH FOR DAYS 1 AND 2
  3. ADRIAMYCIN [Concomitant]
     Active Substance: DOXORUBICIN HYDROCHLORIDE
     Indication: Osteosarcoma
     Dosage: IN THE FOURTH SESSION
  4. CISPLATIN [Interacting]
     Active Substance: CISPLATIN
     Indication: Osteosarcoma
     Dosage: IN THE FIFTH SESSIONS
  5. CISPLATIN [Interacting]
     Active Substance: CISPLATIN
     Indication: Osteosarcoma
     Dosage: REDUCED TO 160 MG
  6. CISPLATIN [Interacting]
     Active Substance: CISPLATIN
     Indication: Osteosarcoma
     Dosage: IN THE THIRD SESSION
  7. CISPLATIN [Interacting]
     Active Substance: CISPLATIN
     Indication: Osteosarcoma
     Dosage: IN THE THIRD SESSION
  8. ADRIAMYCIN [Concomitant]
     Active Substance: DOXORUBICIN HYDROCHLORIDE
     Indication: Osteosarcoma
     Dosage: FIRST DOSE
  9. ADRIAMYCIN [Concomitant]
     Active Substance: DOXORUBICIN HYDROCHLORIDE
     Indication: Osteosarcoma
     Dosage: IN THE FIFTH SESSION
  10. ADRIAMYCIN [Concomitant]
     Active Substance: DOXORUBICIN HYDROCHLORIDE
     Indication: Osteosarcoma
     Dosage: REDUCED
  11. ADRIAMYCIN [Concomitant]
     Active Substance: DOXORUBICIN HYDROCHLORIDE
     Indication: Osteosarcoma
     Dosage: IN THE THIRD SESSION
  12. IFOSFAMIDE [Suspect]
     Active Substance: IFOSFAMIDE
     Indication: Osteosarcoma
     Dosage: 3.0 G/DAY EACH FOR DAYS 3 AND 4
  13. IFOSFAMIDE [Suspect]
     Active Substance: IFOSFAMIDE
     Indication: Osteosarcoma
     Dosage: 3.0 G/DAY EACH FOR DAYS 3 AND 4
  14. IFOSFAMIDE [Suspect]
     Active Substance: IFOSFAMIDE
     Indication: Osteosarcoma
     Dosage: 3.0 G/DAY EACH FOR DAYS 3 AND 4
  15. IFOSFAMIDE [Suspect]
     Active Substance: IFOSFAMIDE
     Indication: Osteosarcoma
     Dosage: 3.0 G/DAY EACH FOR DAYS 3 AND 4

REACTIONS (2)
  - Tubulointerstitial nephritis [Recovered/Resolved]
  - Fanconi syndrome [Recovered/Resolved]
